FAERS Safety Report 6136040-4 (Version None)
Quarter: 2009Q1

REPORT INFORMATION
  Report Type: 
  Country: None (occurrence: None)
  Receive Date: 20090330
  Receipt Date: 20090323
  Transmission Date: 20090719
  Serious: Yes (Hospitalization)
  Sender: FDA-Public Use
  Company Number: JP-BAYER-200910847BYL

PATIENT
  Age: 62 Year
  Sex: Male
  Weight: 52 kg

DRUGS (13)
  1. BETAFERON [Suspect]
     Indication: MULTIPLE SCLEROSIS
     Dosage: TOTAL DAILY DOSE: 8 MIU
     Route: 058
     Dates: start: 20081201, end: 20090201
  2. OMEPRAL [Concomitant]
     Route: 048
  3. AMOBAN [Concomitant]
     Route: 048
  4. AMARYL [Concomitant]
     Route: 048
  5. PREDNISOLONE [Concomitant]
     Route: 048
  6. PURSENNID [Concomitant]
     Route: 048
  7. MOHRUS TAPE L [Concomitant]
     Route: 062
  8. VOLTAREN [Concomitant]
     Route: 054
  9. REMICUT [Concomitant]
     Route: 048
  10. GEBEN [Concomitant]
     Route: 061
  11. HYPEN [Concomitant]
     Route: 048
  12. MUCOSTA [Concomitant]
     Route: 048
  13. RIMATIL [Concomitant]
     Route: 048

REACTIONS (1)
  - SKIN NECROSIS [None]
